FAERS Safety Report 6309081-1 (Version None)
Quarter: 2009Q3

REPORT INFORMATION
  Report Type: 
  Country: None (occurrence: None)
  Receive Date: 20090814
  Receipt Date: 20071115
  Transmission Date: 20100115
  Serious: No
  Sender: FDA-Public Use
  Company Number: US-ASTRAZENECA-2007UW17000

PATIENT
  Age: 8951 Day
  Sex: Male
  Weight: 66.7 kg

DRUGS (6)
  1. SEROQUEL [Suspect]
     Indication: BIPOLAR DISORDER
     Dosage: 200-300 MG
     Route: 048
     Dates: start: 20040219
  2. SEROQUEL [Suspect]
     Route: 048
     Dates: start: 20040301, end: 20050426
  3. SEROQUEL [Suspect]
     Route: 048
     Dates: start: 20040501
  4. ZYPREXA [Concomitant]
     Dates: start: 20010424, end: 20030301
  5. LAMICTAL [Concomitant]
     Dates: start: 20040325
  6. CELEXA [Concomitant]
     Dates: start: 20040729

REACTIONS (10)
  - CHEST PAIN [None]
  - DIABETES MELLITUS [None]
  - DIZZINESS [None]
  - FATIGUE [None]
  - PAIN IN EXTREMITY [None]
  - THIRST [None]
  - THROAT TIGHTNESS [None]
  - TYPE 1 DIABETES MELLITUS [None]
  - URINARY TRACT INFECTION [None]
  - VISION BLURRED [None]
